FAERS Safety Report 7357611-3 (Version None)
Quarter: 2011Q1

REPORT INFORMATION
  Report Type: 
  Country: None (occurrence: None)
  Receive Date: 20110317
  Receipt Date: 20110315
  Transmission Date: 20110831
  Serious: Yes (Hospitalization, Other)
  Sender: FDA-Public Use
  Company Number: IN-BRISTOL-MYERS SQUIBB COMPANY-14637102

PATIENT
  Age: 68 Year
  Sex: Female

DRUGS (10)
  1. LANOXIN [Concomitant]
     Indication: HYPERTENSION
     Dosage: TABS
     Route: 048
     Dates: start: 20090224, end: 20090613
  2. APIXABAN [Suspect]
     Indication: THROMBOSIS PROPHYLAXIS
     Dosage: DRUG INTERRUPTED ON 13MAY2009
     Route: 048
     Dates: start: 20090224
  3. AMLODIPINE [Concomitant]
     Indication: HYPERTENSION
     Dosage: TABLET FORM
     Route: 048
     Dates: start: 20090224
  4. ATENOLOL [Concomitant]
     Indication: HYPERTENSION
     Route: 048
     Dates: start: 20090224
  5. PLACEBO [Suspect]
     Indication: THROMBOSIS PROPHYLAXIS
     Dosage: DRUG INTERRUPTED ON 13MAY2009
     Route: 048
     Dates: start: 20090224
  6. ASPIRIN [Concomitant]
     Indication: ANTIPLATELET THERAPY
     Dosage: TABLET FORM
     Route: 048
     Dates: start: 20090224, end: 20090513
  7. ESOMEPRAZOLE MAGNESIUM [Concomitant]
     Indication: ANTACID THERAPY
     Dosage: CAPSULE FORM
     Route: 048
     Dates: start: 20090224, end: 20090521
  8. RAMIPRIL [Concomitant]
     Indication: HYPERTENSION
     Dosage: TABLET FORM
     Route: 048
     Dates: start: 20090224
  9. WARFARIN SODIUM [Suspect]
     Indication: THROMBOSIS PROPHYLAXIS
     Dosage: DRUG INTERRUPTED ON 13MAY2009
     Route: 048
     Dates: start: 20090224
  10. MULTI-VITAMIN [Concomitant]
     Indication: VITAMIN SUPPLEMENTATION
     Dosage: 1 CAPSULE
     Route: 048
     Dates: start: 20080224

REACTIONS (1)
  - HAEMATURIA [None]
